FAERS Safety Report 24732208 (Version 1)
Quarter: 2024Q4

REPORT INFORMATION
  Report Type: Spontaneous
  Country: CN (occurrence: CN)
  Receive Date: 20241213
  Receipt Date: 20241213
  Transmission Date: 20250115
  Serious: Yes (Life-Threatening, Other)
  Sender: JIANGSU HANSOH PHARMACEUTICAL
  Company Number: CN-Jiangsu Hansoh Pharmaceutical Co., Ltd-2167039

PATIENT
  Age: 72 Year
  Sex: Male
  Weight: 70 kg

DRUGS (4)
  1. GEMCITABINE HYDROCHLORIDE [Suspect]
     Active Substance: GEMCITABINE HYDROCHLORIDE
     Indication: Gallbladder cancer
     Dates: start: 20241023, end: 20241030
  2. CISPLATIN [Suspect]
     Active Substance: CISPLATIN
     Dates: start: 20241023, end: 20241024
  3. LENVATINIB MESYLATE [Suspect]
     Active Substance: LENVATINIB MESYLATE
     Dates: start: 20241024, end: 20241106
  4. SERPLULIMAB [Suspect]
     Active Substance: SERPLULIMAB
     Dates: start: 20241023, end: 20241023

REACTIONS (2)
  - Myelosuppression [Recovered/Resolved]
  - Off label use [Unknown]

NARRATIVE: CASE EVENT DATE: 20241104
